FAERS Safety Report 11528383 (Version 1)
Quarter: 2015Q3

REPORT INFORMATION
  Report Type: Spontaneous
  Country: US (occurrence: US)
  Receive Date: 20150921
  Receipt Date: 20150921
  Transmission Date: 20151125
  Serious: No
  Sender: FDA-Public Use
  Company Number: US-TEVA-528507USA

PATIENT
  Sex: Female

DRUGS (1)
  1. CLONAZEPAM. [Suspect]
     Active Substance: CLONAZEPAM

REACTIONS (5)
  - Rash [Unknown]
  - Feeling abnormal [Unknown]
  - Arthralgia [Unknown]
  - Diarrhoea [Unknown]
  - Stomatitis [Unknown]
